FAERS Safety Report 6583513-6 (Version None)
Quarter: 2010Q1

REPORT INFORMATION
  Report Type: 
  Country: None (occurrence: None)
  Receive Date: 20100216
  Receipt Date: 20100204
  Transmission Date: 20100710
  Serious: Yes (Other)
  Sender: FDA-Public Use
  Company Number: PHHY2010MX06339

PATIENT
  Age: 77 Year
  Sex: Female

DRUGS (2)
  1. EXFORGE [Suspect]
     Indication: HYPERTENSION
     Dosage: 1 TABLET (160/5 MG)PER DAY
     Dates: start: 20031201
  2. NIMOTOP [Concomitant]

REACTIONS (2)
  - FALL [None]
  - SKIN FISSURES [None]
